FAERS Safety Report 5627882-X (Version None)
Quarter: 2008Q1

REPORT INFORMATION
  Report Type: 
  Country: None (occurrence: None)
  Receive Date: 20080215
  Receipt Date: 20080212
  Transmission Date: 20080703
  Serious: Yes (Disabling)
  Sender: FDA-Public Use
  Company Number: GB-MERCK-0802GBR00045

PATIENT
  Age: 20 Year
  Sex: Male

DRUGS (1)
  1. PROPECIA [Suspect]
     Indication: ANDROGENETIC ALOPECIA
     Route: 048

REACTIONS (3)
  - ACNE [None]
  - AMNESIA [None]
  - ERECTILE DYSFUNCTION [None]
